FAERS Safety Report 4466731-2 (Version None)
Quarter: 2004Q3

REPORT INFORMATION
  Report Type: 
  Country: None (occurrence: None)
  Receive Date: 20040930
  Receipt Date: 20040910
  Transmission Date: 20050211
  Serious: Yes (Other)
  Sender: FDA-Public Use
  Company Number: USA040977934

PATIENT
  Sex: Female

DRUGS (13)
  1. HUMALOG [Suspect]
     Dates: start: 19990101
  2. LEVOXYL [Concomitant]
  3. LEXAPRO [Concomitant]
  4. NEXIUM [Concomitant]
  5. VALIUM [Concomitant]
  6. VERAPAMIL [Concomitant]
  7. AMARYL [Concomitant]
  8. AMITRIPTYLINE HCL [Concomitant]
  9. LANTUS [Concomitant]
  10. PLAVIX [Concomitant]
  11. LISINOPRIL [Concomitant]
  12. ASPIRIN [Concomitant]
  13. DEXEDRINE (DEXAMFETAMINE SULFATE) [Concomitant]

REACTIONS (1)
  - CEREBROVASCULAR ACCIDENT [None]
